FAERS Safety Report 8212611-6 (Version None)
Quarter: 2012Q1

REPORT INFORMATION
  Report Type: 
  Country: None (occurrence: None)
  Receive Date: 20120228
  Receipt Date: 20111018
  Transmission Date: 20120608
  Serious: Yes (Hospitalization)
  Sender: FDA-Public Use
  Company Number: RB-33146-2011

PATIENT
  Sex: Female

DRUGS (1)
  1. SUBOXONE [Suspect]
     Indication: PRODUCT USED FOR UNKNOWN INDICATION
     Dosage: (DOSING DETAILS TRANSPLACENTAL)
     Route: 064
     Dates: start: 20100101, end: 20110101

REACTIONS (6)
  - FOETAL EXPOSURE DURING PREGNANCY [None]
  - NEONATAL DISORDER [None]
  - MUSCLE SPASMS [None]
  - INFANTILE SPITTING UP [None]
  - DRUG WITHDRAWAL SYNDROME [None]
  - MUSCULOSKELETAL STIFFNESS [None]
